FAERS Safety Report 24259905 (Version 1)
Quarter: 2024Q3

REPORT INFORMATION
  Report Type: Spontaneous
  Country: US (occurrence: None)
  Receive Date: 20240827
  Receipt Date: 20240827
  Transmission Date: 20241016
  Serious: Yes (Disabling)
  Sender: Public
  Company Number: None

PATIENT
  Age: 65 Year
  Sex: Female
  Weight: 47.7 kg

DRUGS (12)
  1. MOUNJARO [Suspect]
     Active Substance: TIRZEPATIDE
     Indication: Type 2 diabetes mellitus
     Dosage: 1 INJECTION ONCE PER WEEK SUBCUTANEOUS
     Route: 058
     Dates: start: 20240801
  2. GABAPENTIN [Concomitant]
     Active Substance: GABAPENTIN
  3. NORTRIPTYLINE [Concomitant]
     Active Substance: NORTRIPTYLINE
  4. METFORMIN [Concomitant]
     Active Substance: METFORMIN HYDROCHLORIDE
  5. FENOFIBRATE [Concomitant]
     Active Substance: FENOFIBRATE
  6. LOSARTAN [Concomitant]
     Active Substance: LOSARTAN\LOSARTAN POTASSIUM
  7. FAMOTIDINE [Concomitant]
     Active Substance: FAMOTIDINE
  8. SIMVASTATIN [Concomitant]
     Active Substance: SIMVASTATIN
  9. ALENDRONATE [Concomitant]
     Active Substance: ALENDRONATE SODIUM
  10. VITAMINS [Concomitant]
     Active Substance: VITAMINS
  11. PROBIOTICS NOS [Concomitant]
     Active Substance: PROBIOTICS NOS
  12. BIOTIN [Concomitant]
     Active Substance: BIOTIN

REACTIONS (6)
  - Nausea [None]
  - Skin burning sensation [None]
  - Hyperaesthesia [None]
  - Pain of skin [None]
  - Incorrect dose administered [None]
  - Adverse reaction [None]

NARRATIVE: CASE EVENT DATE: 20240801
